FAERS Safety Report 7700749-9 (Version None)
Quarter: 2011Q3

REPORT INFORMATION
  Report Type: 
  Country: None (occurrence: None)
  Receive Date: 20110817
  Receipt Date: 20110809
  Transmission Date: 20111222
  Serious: Yes (Death)
  Sender: FDA-Public Use
  Company Number: JPI-P-009542

PATIENT
  Age: 49 Year
  Sex: Male

DRUGS (3)
  1. XYREM [Suspect]
     Indication: POST-TRAUMATIC STRESS DISORDER
     Dosage: 4.5 GM (2.25 GM, 2 IN 1 D), ORAL, 9 GM (4.5 GM, 2 IN 1 D), ORAL
     Route: 048
     Dates: start: 20091015
  2. XYREM [Suspect]
     Indication: POST-TRAUMATIC STRESS DISORDER
     Dosage: 4.5 GM (2.25 GM, 2 IN 1 D), ORAL, 9 GM (4.5 GM, 2 IN 1 D), ORAL
     Route: 048
     Dates: start: 20090501, end: 20091014
  3. UNSPECIFIED SLEEP MEDICATION [Concomitant]

REACTIONS (3)
  - GAIT DISTURBANCE [None]
  - CARDIAC DEATH [None]
  - OEDEMA [None]
